FAERS Safety Report 21294244 (Version 5)
Quarter: 2023Q4

REPORT INFORMATION
  Report Type: Report from Study
  Country: PA (occurrence: PA)
  Receive Date: 20220905
  Receipt Date: 20231116
  Transmission Date: 20240110
  Serious: Yes (Other)
  Sender: FDA-Public Use
  Company Number: PA-NOVARTISPH-NVSC2021PA015414

PATIENT
  Age: 55 Year
  Sex: Female

DRUGS (4)
  1. KISQALI [Suspect]
     Active Substance: RIBOCICLIB
     Indication: Breast cancer metastatic
     Dosage: 600 MG, QD
     Route: 048
     Dates: start: 20200220
  2. KISQALI [Suspect]
     Active Substance: RIBOCICLIB
     Indication: Nodule
     Dosage: 600 MG, QD
     Route: 048
     Dates: start: 20200716
  3. KISQALI [Suspect]
     Active Substance: RIBOCICLIB
     Dosage: 600 MG, QD (ONCE PER DAY)
     Route: 048
     Dates: start: 2020
  4. ANASTROZOLE [Concomitant]
     Active Substance: ANASTROZOLE
     Indication: Product used for unknown indication
     Dosage: UNK
     Route: 065

REACTIONS (10)
  - Breast neoplasm [Unknown]
  - Chest pain [Unknown]
  - Neoplasm [Unknown]
  - Lung disorder [Recovering/Resolving]
  - COVID-19 [Unknown]
  - Fluid retention [Unknown]
  - Decreased immune responsiveness [Recovering/Resolving]
  - Cough [Unknown]
  - Back pain [Unknown]
  - Haemoglobin increased [Unknown]

NARRATIVE: CASE EVENT DATE: 20210101
